FAERS Safety Report 7544056-6 (Version None)
Quarter: 2011Q2

REPORT INFORMATION
  Report Type: 
  Country: None (occurrence: None)
  Receive Date: 20110613
  Receipt Date: 20051006
  Transmission Date: 20111010
  Serious: Yes (Hospitalization, Other)
  Sender: FDA-Public Use
  Company Number: PHHO2005CA15876

PATIENT
  Sex: Male

DRUGS (2)
  1. EFFEXOR [Suspect]
  2. CLOZAPINE [Suspect]
     Dates: start: 19950911, end: 20050726

REACTIONS (1)
  - TOXICITY TO VARIOUS AGENTS [None]
